FAERS Safety Report 10066234 (Version 2)
Quarter: 2014Q2

REPORT INFORMATION
  Report Type: Spontaneous
  Country: NL (occurrence: NL)
  Receive Date: 20140408
  Receipt Date: 20140428
  Transmission Date: 20141212
  Serious: Yes (Death, Hospitalization, Other)
  Sender: FDA-Public Use
  Company Number: NL-MPIJNJ-2014MPI000971

PATIENT
  Sex: 0

DRUGS (7)
  1. VELCADE [Suspect]
     Indication: PLASMA CELL MYELOMA
     Dosage: 2.3 MG/M2, ON DAYS 1, 4, 8, 11 EVERY 21 DAYS
     Route: 058
     Dates: start: 20130701, end: 20130905
  2. DEXAMETHASONE [Suspect]
     Indication: PLASMA CELL MYELOMA
     Dosage: DAYS 1,2,4,8,9,11,12 EVERY 21 DAYS
     Route: 048
     Dates: start: 20130701, end: 20130905
  3. OXYCONTIN [Concomitant]
     Indication: PAIN
     Dosage: UNK
  4. METOCLOPRAMIDE [Concomitant]
     Indication: NAUSEA
     Dosage: UNK
  5. OXYNORM [Concomitant]
     Indication: PAIN
     Dosage: UNK
  6. AMITRIPTYLINE [Concomitant]
     Indication: PAIN
     Dosage: UNK
  7. PARACETAMOL [Concomitant]
     Indication: PAIN

REACTIONS (3)
  - Death [Fatal]
  - Malignant neoplasm progression [Not Recovered/Not Resolved]
  - Musculoskeletal pain [Not Recovered/Not Resolved]
